FAERS Safety Report 5786387-6 (Version None)
Quarter: 2008Q2

REPORT INFORMATION
  Report Type: 
  Country: None (occurrence: None)
  Receive Date: 20080624
  Receipt Date: 20080611
  Transmission Date: 20081010
  Serious: Yes (Other)
  Sender: FDA-Public Use
  Company Number: GR-ELI_LILLY_AND_COMPANY-GR200806002736

PATIENT
  Age: 79 Year
  Sex: Female

DRUGS (7)
  1. BYETTA [Suspect]
     Indication: DIABETES MELLITUS
     Dosage: 5 UG, 2/D
     Route: 058
     Dates: start: 20080131, end: 20080301
  2. BYETTA [Suspect]
     Dosage: 10 UG, 2/D
     Route: 058
     Dates: start: 20080302, end: 20080309
  3. MADOPAR [Concomitant]
     Indication: PARKINSONIAN REST TREMOR
     Dosage: 250 MG, DAILY (1/D)
     Route: 048
  4. MIRAPEXIN [Concomitant]
     Indication: PARKINSONIAN REST TREMOR
     Dosage: 0.7 MG, DAILY (1/D)
     Route: 048
  5. TEVETEN [Concomitant]
     Indication: HYPERTENSION
     Dosage: UNK MG, UNK
     Route: 048
  6. SALOSPIR [Concomitant]
     Indication: HYPERTENSION
     Dosage: UNK, DAILY (1/D)
     Route: 048
  7. SOLOSA [Concomitant]
     Indication: DIABETES MELLITUS
     Route: 048

REACTIONS (3)
  - DIZZINESS [None]
  - GAIT DISTURBANCE [None]
  - VERTIGO [None]
